FAERS Safety Report 22076895 (Version 1)
Quarter: 2023Q1

REPORT INFORMATION
  Report Type: Spontaneous
  Country: NL (occurrence: NL)
  Receive Date: 20230309
  Receipt Date: 20230309
  Transmission Date: 20230417
  Serious: Yes (Other)
  Sender: FDA-Public Use
  Company Number: None

PATIENT
  Sex: Female
  Weight: 62 kg

DRUGS (1)
  1. TEMAZEPAM [Suspect]
     Active Substance: TEMAZEPAM
     Indication: Insomnia
     Dosage: 20 MILLIGRAM DAILY; 1X 20 MG PER DAY FOR 4 WEEKS, BRAND NAME NOT SPECIFIED
     Route: 065
     Dates: start: 20160901

REACTIONS (4)
  - Anxiety [Not Recovered/Not Resolved]
  - Oversensing [Not Recovered/Not Resolved]
  - Feeling abnormal [Not Recovered/Not Resolved]
  - Paraesthesia [Not Recovered/Not Resolved]
